FAERS Safety Report 8990929 (Version 1)
Quarter: 2012Q4

REPORT INFORMATION
  Report Type: Report from Study
  Country: ES (occurrence: ES)
  Receive Date: 20121231
  Receipt Date: 20121231
  Transmission Date: 20130627
  Serious: Yes (Other)
  Sender: FDA-Public Use
  Company Number: ES-BAYER-2012-119216

PATIENT
  Age: 68 Year
  Sex: Female
  Weight: 78.5 kg

DRUGS (16)
  1. SORAFENIB (RAF KINASE INHIBITOR) [Suspect]
     Indication: BREAST CANCER
     Dosage: 600 mg/day
     Route: 048
     Dates: start: 20120215, end: 20121030
  2. ADDITIONAL STUDY MEDICATION [Suspect]
     Indication: BREAST CANCER
     Dosage: 1300 mg, BID
     Route: 048
     Dates: start: 20120215, end: 20121030
  3. PARACETAMOL [Concomitant]
     Indication: BONE PAIN
     Dosage: 1500 mg/day
     Route: 048
     Dates: start: 20120215
  4. ULTRAVIST [Concomitant]
     Indication: CT SCAN
     Dosage: 120 cc/day
     Route: 042
     Dates: start: 20120202
  5. NOLOTIL [Concomitant]
     Indication: BONE PAIN
     Dosage: 1725 mg/day
     Route: 048
     Dates: start: 20120215
  6. ENALAPRIL [Concomitant]
     Indication: HYPERTENSION
     Dosage: 200 mg/day
     Route: 048
     Dates: start: 2006
  7. FUROSEMIDE [Concomitant]
     Indication: HYPERTENSION
     Dosage: 40 mg/day
     Route: 048
     Dates: start: 2006
  8. CARBOCAL D [Concomitant]
     Indication: BONE METASTASES
     Dosage: 1 DF/day
     Route: 048
     Dates: start: 20120307
  9. ZOMETA [Concomitant]
     Indication: BONE METASTASES
     Dosage: 4 mg/day
     Route: 042
     Dates: start: 20090820
  10. BETAMETHASONE [BETAMETHASONE] [Concomitant]
     Indication: HAND AND FOOT SKIN REACTION
     Dosage: UNK UNK, PRN
     Route: 061
     Dates: start: 20120222
  11. CLOTRIMAZOL [Concomitant]
     Indication: ONYCHOMYCOSIS
     Dosage: UNK UNK, PRN
     Route: 061
     Dates: start: 20120321
  12. LYRICA [Concomitant]
     Indication: DYSESTHESIA
     Dosage: 75 mg/day
     Route: 048
     Dates: start: 20120423
  13. LYRICA [Concomitant]
     Indication: HAND AND FOOT SKIN REACTION
  14. TROXERUTIN [Concomitant]
     Indication: CARDIOVASCULAR EVENT PROPHYLAXIS
     Dosage: UNK
     Route: 048
     Dates: start: 20120523
  15. NALOXONE HCL W/ OXYCODONE HCL [Concomitant]
     Indication: BONE PAIN
     Dosage: total daily dose 20 mg/10 mg
     Route: 048
     Dates: start: 20121106, end: 20121114
  16. RAMIPRIL [Concomitant]
     Indication: HYPERTENSION
     Dosage: total daily dose 2.5 mg
     Route: 048
     Dates: start: 20121127

REACTIONS (1)
  - Pulmonary embolism [Not Recovered/Not Resolved]
